FAERS Safety Report 13014132 (Version 2)
Quarter: 2017Q1

REPORT INFORMATION
  Report Type: Spontaneous
  Country: US (occurrence: US)
  Receive Date: 20161209
  Receipt Date: 20170209
  Transmission Date: 20170428
  Serious: Yes (Hospitalization)
  Sender: FDA-Public Use
  Company Number: US-ASTRAZENECA-2016SF29071

PATIENT
  Age: 87 Year
  Sex: Female

DRUGS (3)
  1. MEDICINES FOR HIGH BLOOD PRESSURE [Concomitant]
  2. SYMBICORT [Suspect]
     Active Substance: BUDESONIDE\FORMOTEROL FUMARATE DIHYDRATE
     Indication: EMPHYSEMA
     Dosage: 160/4.5 2 PUFFS TWO TIMES A DAY
     Route: 055
     Dates: start: 2011
  3. HEART MEDICINES [Concomitant]

REACTIONS (10)
  - Nasopharyngitis [Unknown]
  - Device issue [Unknown]
  - Pneumonia [Unknown]
  - Hypertension [Unknown]
  - Circumstance or information capable of leading to medication error [Unknown]
  - Blood pressure fluctuation [Unknown]
  - Fall [Unknown]
  - Lung disorder [Unknown]
  - Dyspnoea [Unknown]
  - Malaise [Unknown]

NARRATIVE: CASE EVENT DATE: 2016
